FAERS Safety Report 17257492 (Version 5)
Quarter: 2025Q1

REPORT INFORMATION
  Report Type: Spontaneous
  Country: US (occurrence: US)
  Receive Date: 20200110
  Receipt Date: 20250116
  Transmission Date: 20250409
  Serious: Yes (Disabling)
  Sender: PFIZER
  Company Number: US-PFIZER INC-2020010066

PATIENT
  Age: 59 Year
  Sex: Female
  Weight: 81.633 kg

DRUGS (7)
  1. PREMPRO [Suspect]
     Active Substance: ESTROGENS, CONJUGATED\MEDROXYPROGESTERONE ACETATE
     Indication: Menopause
     Dosage: 1 DF, 1X/DAY
     Dates: start: 2015
  2. CEFIXIME [Concomitant]
     Active Substance: CEFIXIME
  3. LEVOTHYROXINE [Concomitant]
     Active Substance: LEVOTHYROXINE
  4. BUTRANS [Concomitant]
     Active Substance: BUPRENORPHINE
     Dosage: 15 UG, WEEKLY
     Route: 062
  5. TOPIRAMATE [Concomitant]
     Active Substance: TOPIRAMATE
     Indication: Spinal cord disorder
     Dosage: 50 MG, 2X/DAY
  6. TOPIRAMATE [Concomitant]
     Active Substance: TOPIRAMATE
     Indication: Migraine
  7. TOPIRAMATE [Concomitant]
     Active Substance: TOPIRAMATE
     Indication: Intervertebral disc disorder

REACTIONS (2)
  - Spinal disorder [Unknown]
  - Condition aggravated [Unknown]
